FAERS Safety Report 25803802 (Version 1)
Quarter: 2025Q3

REPORT INFORMATION
  Report Type: Spontaneous
  Country: EU (occurrence: EU)
  Receive Date: 20250915
  Receipt Date: 20250915
  Transmission Date: 20251021
  Serious: Yes (Other)
  Sender: ASCEND THERAPEUTICS US, LLC
  Company Number: EU-Ascend Therapeutics US, LLC-2184542

PATIENT
  Age: 51 Year
  Sex: Female

DRUGS (9)
  1. ESTROGEL [Suspect]
     Active Substance: ESTRADIOL
     Indication: Mood swings
     Dates: start: 202411, end: 202504
  2. ESTROGEL [Suspect]
     Active Substance: ESTRADIOL
     Indication: Hormone replacement therapy
  3. ESTROGEL [Suspect]
     Active Substance: ESTRADIOL
     Indication: Menopause
  4. ESTROGEL [Suspect]
     Active Substance: ESTRADIOL
     Indication: Sleep disorder
  5. PROGESTERONE [Suspect]
     Active Substance: PROGESTERONE
     Dates: start: 202411, end: 202504
  6. L-thyroxine 25 [Concomitant]
  7. ESTRADIOL [Suspect]
     Active Substance: ESTRADIOL
     Dates: start: 202504
  8. ESTRADIOL [Suspect]
     Active Substance: ESTRADIOL
     Dates: start: 202411, end: 202504
  9. PROGESTERONE [Suspect]
     Active Substance: PROGESTERONE
     Dates: start: 202504

REACTIONS (11)
  - Polyneuropathy [Recovering/Resolving]
  - Product use in unapproved indication [Unknown]
  - Underdose [Unknown]
  - Breast tenderness [Recovered/Resolved]
  - Hot flush [Recovering/Resolving]
  - Hypoaesthesia [Recovering/Resolving]
  - Malaise [Recovering/Resolving]
  - Insomnia [Not Recovered/Not Resolved]
  - Palpitations [Recovering/Resolving]
  - Restlessness [Recovering/Resolving]
  - Sensory disturbance [Recovering/Resolving]

NARRATIVE: CASE EVENT DATE: 20241101
